FAERS Safety Report 10040808 (Version 2)
Quarter: 2014Q1

REPORT INFORMATION
  Report Type: Spontaneous
  Country: FR (occurrence: FR)
  Receive Date: 20140327
  Receipt Date: 20140331
  Transmission Date: 20141002
  Serious: Yes (Other)
  Sender: FDA-Public Use
  Company Number: FR-JNJFOC-20140314687

PATIENT
  Age: 41 Year
  Sex: Male

DRUGS (2)
  1. XARELTO [Suspect]
     Indication: THROMBOSIS PROPHYLAXIS
     Route: 048
     Dates: start: 20140127, end: 20140311
  2. XARELTO [Suspect]
     Indication: EMBOLISM
     Route: 048
     Dates: start: 20140127, end: 20140311

REACTIONS (4)
  - Hepatitis [Unknown]
  - Epistaxis [Unknown]
  - Rectal haemorrhage [Unknown]
  - Haemoptysis [Unknown]
